FAERS Safety Report 6145046-0 (Version None)
Quarter: 2009Q2

REPORT INFORMATION
  Report Type: 
  Country: None (occurrence: None)
  Receive Date: 20090401
  Receipt Date: 20090401
  Transmission Date: 20091009
  Serious: Yes (Other)
  Sender: FDA-Public Use
  Company Number: None

PATIENT
  Age: 30 Year
  Sex: Female
  Weight: 53.5244 kg

DRUGS (1)
  1. DILAUDID [Suspect]
     Dosage: 1MG

REACTIONS (2)
  - RESPIRATORY RATE INCREASED [None]
  - THROAT TIGHTNESS [None]
